FAERS Safety Report 4752063-1 (Version None)
Quarter: 2005Q3

REPORT INFORMATION
  Report Type: 
  Country: None (occurrence: None)
  Receive Date: 20050822
  Receipt Date: 20050601
  Transmission Date: 20060218
  Serious: No
  Sender: FDA-Public Use
  Company Number: PHEH2005US06146

PATIENT
  Age: 21 Year
  Sex: Female

DRUGS (1)
  1. ZELNORM [Suspect]
     Indication: IMPAIRED GASTRIC EMPTYING
     Dosage: 2 MG, BID, ORAL
     Route: 048
     Dates: start: 20050501

REACTIONS (3)
  - DYSMENORRHOEA [None]
  - HYPOAESTHESIA [None]
  - PARAESTHESIA [None]
